FAERS Safety Report 5880003-0 (Version None)
Quarter: 2008Q3

REPORT INFORMATION
  Report Type: 
  Country: None (occurrence: None)
  Receive Date: 20080912
  Receipt Date: 20080909
  Transmission Date: 20090109
  Serious: Yes (Hospitalization)
  Sender: FDA-Public Use
  Company Number: AU-BRISTOL-MYERS SQUIBB COMPANY-14294342

PATIENT
  Age: 46 Year
  Sex: Male

DRUGS (12)
  1. BLINDED: ABATACEPT [Suspect]
     Indication: CROHN'S DISEASE
     Route: 042
     Dates: start: 20080527, end: 20080723
  2. BLINDED: PLACEBO [Suspect]
     Indication: CROHN'S DISEASE
  3. PREDNISONE TAB [Concomitant]
     Indication: CROHN'S DISEASE
     Dates: start: 20071201
  4. METHOTREXATE [Concomitant]
     Indication: CROHN'S DISEASE
     Dates: start: 20070901
  5. MULTI-VITAMIN [Concomitant]
     Indication: VITAMIN SUPPLEMENTATION
     Dosage: 1 DOSAGE FORM = 1(UNIT NOT SPECIFIED).
  6. VENTOLIN [Concomitant]
     Indication: ASTHMA
     Dates: start: 20040101
  7. SERETIDE [Concomitant]
     Indication: ASTHMA PROPHYLAXIS
     Dates: start: 20040101
  8. PANADEINE [Concomitant]
     Indication: HEADACHE
     Dosage: 1 DOSAGE FORM = 1000MG TO 2000MG
     Dates: start: 20080101
  9. ACETAMINOPHEN [Concomitant]
     Indication: HEADACHE
     Dates: start: 20030101
  10. FOLIC ACID [Concomitant]
     Indication: PROPHYLAXIS
     Dates: start: 20070901
  11. CALTRATE [Concomitant]
     Indication: PROPHYLAXIS
     Dates: start: 20080403
  12. SALOFALK [Concomitant]
     Indication: CROHN'S DISEASE
     Dosage: SALOFALK GRANULES
     Dates: start: 20060401

REACTIONS (1)
  - PNEUMONIA [None]
